FAERS Safety Report 10268776 (Version 7)
Quarter: 2015Q3

REPORT INFORMATION
  Report Type: Spontaneous
  Country: US (occurrence: US)
  Receive Date: 20140630
  Receipt Date: 20150811
  Transmission Date: 20151125
  Serious: Yes (Other)
  Sender: FDA-Public Use
  Company Number: US-GLAXOSMITHKLINE-A1076313A

PATIENT
  Age: 71 Year
  Sex: Female

DRUGS (4)
  1. ADVAIR DISKUS [Suspect]
     Active Substance: FLUTICASONE PROPIONATE\SALMETEROL XINAFOATE
     Indication: CHRONIC OBSTRUCTIVE PULMONARY DISEASE
     Dosage: UNK, U
     Route: 065
     Dates: start: 20111005
  2. ADVAIR DISKUS [Suspect]
     Active Substance: FLUTICASONE PROPIONATE\SALMETEROL XINAFOATE
     Indication: EMPHYSEMA
     Dosage: 1 PUFF(S), BID
     Route: 055
  3. VENTOLIN [Suspect]
     Active Substance: ALBUTEROL SULFATE
     Indication: DYSPNOEA
     Dosage: 90 MCG
  4. PROVENTIL [Concomitant]
     Active Substance: ALBUTEROL

REACTIONS (7)
  - Adverse drug reaction [Unknown]
  - Oxygen supplementation [Unknown]
  - Aphonia [Unknown]
  - Sinus disorder [Unknown]
  - Bronchitis [Unknown]
  - Nasopharyngitis [Unknown]
  - Dysphonia [Unknown]

NARRATIVE: CASE EVENT DATE: 20140602
